FAERS Safety Report 5913003-2 (Version None)
Quarter: 2008Q4

REPORT INFORMATION
  Report Type: 
  Country: None (occurrence: None)
  Receive Date: 20081006
  Receipt Date: 20080923
  Transmission Date: 20090506
  Serious: Yes (Hospitalization, Other)
  Sender: FDA-Public Use
  Company Number: 2008BI025181

PATIENT
  Age: 50 Year
  Sex: Female

DRUGS (2)
  1. AVONEX [Suspect]
     Indication: MULTIPLE SCLEROSIS
     Dosage: IM
     Route: 030
     Dates: start: 19990101
  2. . [Concomitant]

REACTIONS (2)
  - RECTAL CANCER [None]
  - VULVAL CANCER [None]
